FAERS Safety Report 15315805 (Version 1)
Quarter: 2018Q3

REPORT INFORMATION
  Report Type: Spontaneous
  Country: US (occurrence: US)
  Receive Date: 20180815
  Receipt Date: 20180815
  Transmission Date: 20181010
  Serious: Yes (Hospitalization, Other)
  Sender: FDA-Public Use
  Company Number: None

PATIENT
  Age: 29 Year
  Sex: Male
  Weight: 74.25 kg

DRUGS (6)
  1. RISPERDAL [Suspect]
     Active Substance: RISPERIDONE
     Indication: PSYCHOTIC DISORDER
     Dosage: ?          QUANTITY:1 TABLET(S);?
     Route: 048
     Dates: start: 20050901, end: 20060121
  2. DEPAKOTE [Suspect]
     Active Substance: DIVALPROEX SODIUM
  3. COGENTIN [Suspect]
     Active Substance: BENZTROPINE MESYLATE
  4. ST. JOHN^S WORT [Concomitant]
     Active Substance: ST. JOHN^S WORT
  5. ZOLOFT [Concomitant]
     Active Substance: SERTRALINE HYDROCHLORIDE
  6. FISH OIL [Concomitant]
     Active Substance: FISH OIL

REACTIONS (2)
  - Abnormal behaviour [None]
  - Suicidal ideation [None]

NARRATIVE: CASE EVENT DATE: 20050901
